FAERS Safety Report 8771463 (Version 2)
Quarter: 2012Q4

REPORT INFORMATION
  Report Type: 
  Country: BE (occurrence: NO)
  Receive Date: 20120906
  Receipt Date: 20120906
  Transmission Date: 20130627
  Serious: Yes (Hospitalization)
  Sender: FDA-Public Use
  Company Number: NO-JNJFOC-2007070601

PATIENT
  Sex: Female

DRUGS (5)
  1. CETIRIZINE (TABLETS) [Suspect]
  2. CETIRIZINE (TABLETS) [Suspect]
     Indication: FOOD ALLERGY
  3. LEVOCETIRIZINE [Suspect]
     Indication: FOOD ALLERGY
     Dates: start: 20031020, end: 20040428
  4. ESCITALOPRAM [Concomitant]
     Dates: end: 20040427
  5. OXAZEPAM [Concomitant]
     Dates: start: 20040329, end: 20040412

REACTIONS (14)
  - Weight decreased [Recovering/Resolving]
  - Eating disorder [Recovering/Resolving]
  - Panic disorder [Recovering/Resolving]
  - Dry mouth [Recovered/Resolved]
  - Heart rate increased [Recovering/Resolving]
  - Dysgeusia [Recovered/Resolved]
  - Disturbance in attention [Recovering/Resolving]
  - Suicidal ideation [Recovered/Resolved]
  - Feeling abnormal [Recovered/Resolved]
  - Parosmia [Recovered/Resolved]
  - Liver disorder [Recovered/Resolved]
  - Chills [Recovered/Resolved]
  - Feeling hot [Recovered/Resolved]
  - Urinary tract infection [Recovered/Resolved]
